FAERS Safety Report 8989616 (Version 2)
Quarter: 2013Q1

REPORT INFORMATION
  Report Type: Spontaneous
  Country: US (occurrence: US)
  Receive Date: 20121228
  Receipt Date: 20130116
  Transmission Date: 20140127
  Serious: No
  Sender: FDA-Public Use
  Company Number: US-BIOGENIDEC-2012BI062522

PATIENT
  Age: 39 Year
  Sex: Female

DRUGS (1)
  1. AVONEX [Suspect]
     Indication: MULTIPLE SCLEROSIS
     Route: 030
     Dates: start: 20060526

REACTIONS (6)
  - Nasopharyngitis [Not Recovered/Not Resolved]
  - Weight decreased [Recovered/Resolved]
  - Food poisoning [Recovered/Resolved]
  - Menstruation irregular [Not Recovered/Not Resolved]
  - Gait disturbance [Unknown]
  - Dizziness [Recovered/Resolved]
